FAERS Safety Report 8108667 (Version 3)
Quarter: 2013Q3

REPORT INFORMATION
  Report Type: Spontaneous
  Country: FR (occurrence: FR)
  Receive Date: 20110826
  Receipt Date: 20130923
  Transmission Date: 20140515
  Serious: Yes (Death)
  Sender: FDA-Public Use
  Company Number: FR-ALEXION PHARMACEUTICALS INC.-A201101273

PATIENT
  Age: 31 Year
  Sex: Male

DRUGS (2)
  1. SOLIRIS 300MG [Suspect]
     Indication: ANTIPHOSPHOLIPID SYNDROME
     Dosage: 900 MG, QW
     Route: 042
     Dates: start: 20110729, end: 20110805
  2. SOLIRIS 300MG [Suspect]
     Indication: OFF LABEL USE

REACTIONS (1)
  - Hydrocephalus [Fatal]
